FAERS Safety Report 5625821-9 (Version None)
Quarter: 2008Q1

REPORT INFORMATION
  Report Type: 
  Country: None (occurrence: None)
  Receive Date: 20080213
  Receipt Date: 20080213
  Transmission Date: 20080703
  Serious: Yes (Death, Life-Threatening, Hospitalization)
  Sender: FDA-Public Use
  Company Number: None

PATIENT
  Age: 85 Year
  Sex: Female
  Weight: 52.1637 kg

DRUGS (2)
  1. BOTOX [Suspect]
     Indication: OESOPHAGEAL ACHALASIA
     Dosage: FIRST TREATMENT PO EVERY 6 MONTHS
     Route: 048
     Dates: start: 20040601, end: 20050220
  2. BOTOX [Suspect]
     Indication: OESOPHAGEAL ACHALASIA
     Dosage: FIRST TREATMENT PO EVERY 6 MONTHS
     Route: 048
     Dates: start: 20041116, end: 20050220

REACTIONS (2)
  - ASTHENIA [None]
  - OESOPHAGEAL OBSTRUCTION [None]
